FAERS Safety Report 10236775 (Version 1)
Quarter: 2014Q2

REPORT INFORMATION
  Report Type: Spontaneous
  Country: PL (occurrence: PL)
  Receive Date: 20140613
  Receipt Date: 20140613
  Transmission Date: 20141212
  Serious: Yes (Life-Threatening)
  Sender: FDA-Public Use
  Company Number: PL-GLAXOSMITHKLINE-B1003436A

PATIENT
  Age: 80 Year
  Sex: Female

DRUGS (2)
  1. ZINNAT [Suspect]
     Indication: PNEUMONIA
     Route: 042
     Dates: start: 20140314, end: 20140314
  2. HEPAMERZ [Suspect]
     Indication: HEPATIC FAILURE
     Route: 042
     Dates: start: 20140314, end: 20140314

REACTIONS (4)
  - Cyanosis [Recovered/Resolved]
  - Dyspnoea [Recovered/Resolved]
  - Muscle spasticity [Recovered/Resolved]
  - Apparent life threatening event [None]
